FAERS Safety Report 5504673-1 (Version None)
Quarter: 2007Q4

REPORT INFORMATION
  Report Type: 
  Country: None (occurrence: None)
  Receive Date: 20071031
  Receipt Date: 20071015
  Transmission Date: 20080405
  Serious: Yes (Death)
  Sender: FDA-Public Use
  Company Number: 162992ISR

PATIENT
  Sex: 0

DRUGS (4)
  1. CISPLATIN [Suspect]
     Indication: GERM CELL CANCER
     Dosage: 50 MG/M2, OVER 4H DAYS 3 AND 4
  2. ETOPOSIDE [Suspect]
     Indication: GERM CELL CANCER
     Dosage: 90 MG/M2, DAYS 1-4 OVER 2H
  3. DACTINOMYCIN [Suspect]
     Indication: GERM CELL CANCER
     Dosage: 1 MG/M2
  4. METHOTREXATE [Suspect]
     Indication: GERM CELL CANCER

REACTIONS (4)
  - DRUG TOXICITY [None]
  - FEBRILE NEUTROPENIA [None]
  - INTRA-ABDOMINAL HAEMORRHAGE [None]
  - SEPSIS [None]
